FAERS Safety Report 23219495 (Version 1)
Quarter: 2023Q4

REPORT INFORMATION
  Report Type: Spontaneous
  Country: CA (occurrence: CA)
  Receive Date: 20231122
  Receipt Date: 20231122
  Transmission Date: 20240110
  Serious: Yes (Other)
  Sender: FDA-Public Use
  Company Number: CA-AstraZeneca-2023A262829

PATIENT
  Age: 75 Year
  Sex: Female

DRUGS (1)
  1. TRASTUZUMAB DERUXTECAN [Suspect]
     Active Substance: TRASTUZUMAB DERUXTECAN
     Indication: Breast cancer metastatic
     Dosage: 297 MG, ONCE EVERY 3 WK
     Route: 042

REACTIONS (3)
  - Lung opacity [Unknown]
  - Pneumonitis [Unknown]
  - Toxicity to various agents [Unknown]
